FAERS Safety Report 15952586 (Version 1)
Quarter: 2019Q1

REPORT INFORMATION
  Report Type: Spontaneous
  Country: US (occurrence: US)
  Receive Date: 20190212
  Receipt Date: 20190212
  Transmission Date: 20190417
  Serious: No
  Sender: FDA-Public Use
  Company Number: US-PFIZER INC-2019063271

PATIENT
  Age: 77 Year
  Sex: Female

DRUGS (1)
  1. IBRANCE [Suspect]
     Active Substance: PALBOCICLIB
     Dosage: 125 MG, CYCLIC(TAKE ONE CAPSULE BY MOUTH DAILY ON DAYS 1-21, THEN 7 DAY REST PERIOD)
     Route: 048
     Dates: start: 20180201

REACTIONS (1)
  - Diarrhoea [Unknown]
